FAERS Safety Report 7044805-X (Version None)
Quarter: 2010Q4

REPORT INFORMATION
  Report Type: 
  Country: None (occurrence: None)
  Receive Date: 20101014
  Receipt Date: 20101005
  Transmission Date: 20110411
  Serious: Yes (Other)
  Sender: FDA-Public Use
  Company Number: US-JNJFOC-20101002214

PATIENT
  Sex: Male
  Weight: 36.29 kg

DRUGS (3)
  1. RISPERDAL [Suspect]
     Indication: AGGRESSION
     Route: 048
  2. ZOLOFT [Suspect]
     Indication: AGGRESSION
     Route: 048
  3. ADDERALL 10 [Concomitant]
     Indication: AGGRESSION
     Route: 048

REACTIONS (2)
  - DEPRESSED MOOD [None]
  - HALLUCINATION, AUDITORY [None]
